FAERS Safety Report 8872802 (Version 1)
Quarter: 2012Q4

REPORT INFORMATION
  Report Type: Report from Study
  Country: DE (occurrence: DE)
  Receive Date: 20121030
  Receipt Date: 20121030
  Transmission Date: 20130627
  Serious: Yes (Hospitalization)
  Sender: FDA-Public Use
  Company Number: DE-ROCHE-1149619

PATIENT
  Sex: Female

DRUGS (8)
  1. RITUXIMAB [Suspect]
     Indication: RHEUMATOID ARTHRITIS
     Route: 050
     Dates: start: 20080320
  2. METHOTREXATE [Suspect]
     Indication: RHEUMATOID ARTHRITIS
     Route: 051
     Dates: start: 200509, end: 200907
  3. METHOTREXATE [Suspect]
     Route: 051
     Dates: start: 200911, end: 201207
  4. OMEPRAZOL [Concomitant]
     Route: 065
  5. TORASEMID [Concomitant]
     Route: 065
  6. MARCUMAR [Concomitant]
  7. RAMIPRIL [Concomitant]
     Route: 065
  8. INSULIN [Concomitant]

REACTIONS (3)
  - Pancytopenia [Not Recovered/Not Resolved]
  - Hepatic cirrhosis [Not Recovered/Not Resolved]
  - Varices oesophageal [Not Recovered/Not Resolved]
